FAERS Safety Report 8345625-6 (Version None)
Quarter: 2012Q2

REPORT INFORMATION
  Report Type: 
  Country: None (occurrence: None)
  Receive Date: 20120508
  Receipt Date: 20120430
  Transmission Date: 20120825
  Serious: Yes (Hospitalization, Other)
  Sender: FDA-Public Use
  Company Number: US-MERCK-1201USA02845

PATIENT
  Age: 50 Year
  Sex: Female

DRUGS (2)
  1. CALCIUM (UNSPECIFIED) [Concomitant]
     Indication: OSTEOPOROSIS
     Route: 065
     Dates: start: 20030101
  2. FOSAMAX [Suspect]
     Indication: OSTEOPOROSIS
     Route: 048
     Dates: start: 20030321, end: 20100301

REACTIONS (21)
  - CHEST PAIN [None]
  - GAIT DISTURBANCE [None]
  - FALL [None]
  - OEDEMA PERIPHERAL [None]
  - GALLBLADDER DISORDER [None]
  - HAEMORRHAGE [None]
  - LOW TURNOVER OSTEOPATHY [None]
  - CARDIAC MURMUR [None]
  - CERUMEN IMPACTION [None]
  - HAND FRACTURE [None]
  - LIGAMENT SPRAIN [None]
  - TONSILLAR DISORDER [None]
  - PAIN IN EXTREMITY [None]
  - OSTEOPENIA [None]
  - FOREIGN BODY [None]
  - SPINAL OSTEOARTHRITIS [None]
  - SLEEP DISORDER [None]
  - FEMUR FRACTURE [None]
  - LIMB ASYMMETRY [None]
  - SPONDYLOLISTHESIS [None]
  - MEDICAL DEVICE DISCOMFORT [None]
